FAERS Safety Report 25601863 (Version 2)
Quarter: 2025Q3

REPORT INFORMATION
  Report Type: Spontaneous
  Country: CA (occurrence: CA)
  Receive Date: 20250724
  Receipt Date: 20250728
  Transmission Date: 20251021
  Serious: Yes (Other)
  Sender: PFIZER
  Company Number: CA-PFIZER INC-202500148144

PATIENT
  Age: 22 Year
  Sex: Female

DRUGS (2)
  1. ABRILADA [Suspect]
     Active Substance: ADALIMUMAB-AFZB
     Indication: Crohn^s disease
     Route: 058
     Dates: start: 20250707
  2. ABRILADA [Suspect]
     Active Substance: ADALIMUMAB-AFZB
     Route: 058
     Dates: start: 20250721

REACTIONS (8)
  - Urticaria [Recovered/Resolved]
  - Anxiety [Recovered/Resolved]
  - Heart rate increased [Recovering/Resolving]
  - Drug hypersensitivity [Recovering/Resolving]
  - Rash macular [Recovering/Resolving]
  - Condition aggravated [Unknown]
  - Skin irritation [Recovering/Resolving]
  - Off label use [Unknown]

NARRATIVE: CASE EVENT DATE: 20250701
